FAERS Safety Report 8503719-6 (Version None)
Quarter: 2012Q3

REPORT INFORMATION
  Report Type: 
  Country: None (occurrence: None)
  Receive Date: 20120711
  Receipt Date: 20120703
  Transmission Date: 20120928
  Serious: Yes (Hospitalization, Other)
  Sender: FDA-Public Use
  Company Number: US-PFIZER INC-2012161363

PATIENT
  Sex: Male

DRUGS (2)
  1. EFFEXOR XR [Suspect]
     Indication: GENERALISED ANXIETY DISORDER
  2. EFFEXOR XR [Suspect]
     Indication: DEPRESSION
     Dosage: 150 MG, 1X/DAY (MORNING)

REACTIONS (11)
  - ACTIVITIES OF DAILY LIVING IMPAIRED [None]
  - SOCIAL AVOIDANT BEHAVIOUR [None]
  - AGITATION [None]
  - COGNITIVE DISORDER [None]
  - SUICIDAL IDEATION [None]
  - DRUG INEFFECTIVE [None]
  - DEPRESSION [None]
  - ANXIETY [None]
  - PANIC ATTACK [None]
  - PSYCHOTIC DISORDER [None]
  - MEMORY IMPAIRMENT [None]
